FAERS Safety Report 9148098 (Version 5)
Quarter: 2013Q3

REPORT INFORMATION
  Report Type: Spontaneous
  Country: US (occurrence: US)
  Receive Date: 20130308
  Receipt Date: 20130805
  Transmission Date: 20140515
  Serious: Yes (Other)
  Sender: FDA-Public Use
  Company Number: US-BIOGENIDEC-2013BI020949

PATIENT
  Age: 56 Year
  Sex: Female

DRUGS (3)
  1. AVONEX [Suspect]
     Indication: MULTIPLE SCLEROSIS
     Route: 030
     Dates: end: 2003
  2. AVONEX [Suspect]
     Indication: MULTIPLE SCLEROSIS
     Route: 030
     Dates: start: 2003
  3. AVONEX [Suspect]
     Indication: MULTIPLE SCLEROSIS
     Route: 030
     Dates: start: 2012

REACTIONS (9)
  - Intraductal proliferative breast lesion [Recovered/Resolved]
  - Invasive ductal breast carcinoma [Recovered/Resolved]
  - Benign breast neoplasm [Recovered/Resolved]
  - Balance disorder [Unknown]
  - Panic attack [Recovered/Resolved]
  - Gait disturbance [Unknown]
  - Hot flush [Not Recovered/Not Resolved]
  - Influenza like illness [Recovered/Resolved]
  - Anxiety [Unknown]
